FAERS Safety Report 15800820 (Version 1)
Quarter: 2019Q1

REPORT INFORMATION
  Report Type: Other
  Country: HR (occurrence: HR)
  Receive Date: 20190109
  Receipt Date: 20190109
  Transmission Date: 20190417
  Serious: Yes (Death, Life-Threatening, Hospitalization, Other)
  Sender: FDA-Public Use
  Company Number: HR-ACCORD-101021

PATIENT
  Age: 73 Year
  Sex: Female

DRUGS (13)
  1. LISINOPRIL. [Concomitant]
     Active Substance: LISINOPRIL
     Indication: HYPERTENSION
     Route: 065
  2. CALCIUM CARBONATE. [Concomitant]
     Active Substance: CALCIUM CARBONATE
     Indication: HYPERTENSION
  3. FUROSEMIDE. [Suspect]
     Active Substance: FUROSEMIDE
     Indication: CHRONIC KIDNEY DISEASE
     Route: 065
  4. LORATADINE. [Suspect]
     Active Substance: LORATADINE
     Indication: ANTIALLERGIC THERAPY
  5. GENTAMICIN. [Suspect]
     Active Substance: GENTAMICIN
     Indication: ANTIBIOTIC THERAPY
     Route: 061
  6. ACETYLSALICYLIC ACID [Concomitant]
     Active Substance: ASPIRIN
     Indication: CHRONIC KIDNEY DISEASE
  7. LISINOPRIL. [Concomitant]
     Active Substance: LISINOPRIL
     Indication: CHRONIC KIDNEY DISEASE
     Route: 065
  8. CIPROFLOXACIN. [Suspect]
     Active Substance: CIPROFLOXACIN
     Indication: ANTIBIOTIC THERAPY
     Dosage: 400MG
     Route: 042
  9. FISH OIL [Suspect]
     Active Substance: FISH OIL
     Indication: TOXIC EPIDERMAL NECROLYSIS
  10. METHYLPREDNISOLONE. [Suspect]
     Active Substance: METHYLPREDNISOLONE
     Indication: STEROID THERAPY
     Dosage: 125MG
     Route: 042
  11. CALCIUM CARBONATE. [Concomitant]
     Active Substance: CALCIUM CARBONATE
     Indication: CHRONIC KIDNEY DISEASE
  12. FUROSEMIDE. [Interacting]
     Active Substance: FUROSEMIDE
     Indication: HYPERTENSION
     Route: 065
  13. CEFUROXIME. [Interacting]
     Active Substance: CEFUROXIME
     Indication: ESCHERICHIA URINARY TRACT INFECTION
     Dosage: 500 MG TWICE DAILY
     Route: 048

REACTIONS (19)
  - Protein total decreased [Unknown]
  - Multiple organ dysfunction syndrome [Fatal]
  - Skin disorder [Unknown]
  - Oesophagitis haemorrhagic [Unknown]
  - Malaise [Unknown]
  - Mouth ulceration [Unknown]
  - Staphylococcal infection [Unknown]
  - Leukopenia [Not Recovered/Not Resolved]
  - Granulocytopenia [Fatal]
  - Drug interaction [Fatal]
  - Staphylococcal sepsis [Fatal]
  - Gastrointestinal haemorrhage [Fatal]
  - Toxic epidermal necrolysis [Fatal]
  - Keratitis [Unknown]
  - Hypertension [Unknown]
  - Escherichia infection [Unknown]
  - Sepsis [Unknown]
  - Arthralgia [Unknown]
  - Skin oedema [Unknown]
